FAERS Safety Report 20931429 (Version 1)
Quarter: 2022Q2

REPORT INFORMATION
  Report Type: Spontaneous
  Country: US (occurrence: US)
  Receive Date: 20220608
  Receipt Date: 20220608
  Transmission Date: 20220721
  Serious: No
  Sender: FDA-Public Use
  Company Number: US-BIOGEN-2022BI01121916

PATIENT
  Sex: Female

DRUGS (4)
  1. VUMERITY [Suspect]
     Active Substance: DIROXIMEL FUMARATE
     Indication: Multiple sclerosis
     Route: 065
     Dates: start: 20220413
  2. VUMERITY [Suspect]
     Active Substance: DIROXIMEL FUMARATE
     Dosage: MAITENANCE DOSE
     Route: 065
     Dates: start: 20220422, end: 20220520
  3. LYRICA [Concomitant]
     Active Substance: PREGABALIN
     Route: 065
  4. MODAFINIL [Concomitant]
     Active Substance: MODAFINIL
     Route: 065

REACTIONS (6)
  - Nausea [Unknown]
  - Product dose omission issue [Unknown]
  - Electric shock sensation [Unknown]
  - White blood cell count decreased [Recovered/Resolved]
  - Laboratory test abnormal [Recovered/Resolved]
  - Headache [Recovered/Resolved]
